FAERS Safety Report 6531355-X (Version None)
Quarter: 2010Q1

REPORT INFORMATION
  Report Type: 
  Country: None (occurrence: None)
  Receive Date: 20100108
  Receipt Date: 20091015
  Transmission Date: 20100710
  Serious: No
  Sender: FDA-Public Use
  Company Number: A0809825A

PATIENT
  Age: 51 Year
  Sex: Female

DRUGS (10)
  1. TYKERB [Suspect]
     Indication: DRUG USE FOR UNKNOWN INDICATION
     Dosage: 1250MGD PER DAY
     Route: 048
     Dates: start: 20090919, end: 20091013
  2. KAOPECTATE [Concomitant]
  3. BENADRYL [Concomitant]
  4. TYLENOL (CAPLET) [Concomitant]
  5. ADVIL [Concomitant]
  6. DIGESTIVE MEDICATION (VITAMIN) [Concomitant]
  7. FLAX SEED OIL [Concomitant]
  8. MONAVIE [Concomitant]
  9. TUMS [Concomitant]
  10. PEPCID [Concomitant]

REACTIONS (5)
  - ACNE [None]
  - DIARRHOEA [None]
  - FATIGUE [None]
  - NAUSEA [None]
  - SOMNOLENCE [None]
